FAERS Safety Report 18561145 (Version 1)
Quarter: 2020Q4

REPORT INFORMATION
  Report Type: Report from Study
  Country: CA (occurrence: CA)
  Receive Date: 20201130
  Receipt Date: 20201130
  Transmission Date: 20210114
  Serious: Yes (Life-Threatening, Hospitalization, Other)
  Sender: FDA-Public Use
  Company Number: CA-INDIVIOR US-INDV-124025-2020

PATIENT
  Age: 35 Year
  Sex: Female
  Weight: 86 kg

DRUGS (4)
  1. SUBOXONE [Suspect]
     Active Substance: BUPRENORPHINE HYDROCHLORIDE\NALOXONE HYDROCHLORIDE
     Indication: DRUG DEPENDENCE
     Dosage: 8 MILLIGRAM, TID
     Route: 060
     Dates: start: 2014, end: 20200407
  2. FOLIC ACID. [Concomitant]
     Active Substance: FOLIC ACID
     Indication: PHYTOTHERAPY
     Dosage: 1 MILLIGRAM, QD
     Route: 065
     Dates: start: 202001, end: 202011
  3. SUBUTEX [Suspect]
     Active Substance: BUPRENORPHINE HYDROCHLORIDE
     Indication: DRUG DEPENDENCE
     Dosage: 28 MILLIGRAMS, THREE TIMES DAILY
     Route: 060
     Dates: start: 20200408, end: 20201102
  4. MATERNA                            /02266601/ [Concomitant]
     Active Substance: MINERALS\VITAMINS
     Indication: PROPHYLAXIS
     Dosage: UNK, QD
     Route: 065
     Dates: start: 202001

REACTIONS (5)
  - Bradycardia foetal [Recovered/Resolved]
  - Placenta praevia [Recovered/Resolved]
  - Maternal exposure during pregnancy [Recovered/Resolved]
  - Inappropriate schedule of product administration [Recovered/Resolved]
  - Prescribed overdose [Recovered/Resolved]

NARRATIVE: CASE EVENT DATE: 2014
